FAERS Safety Report 18809952 (Version 2)
Quarter: 2021Q1

REPORT INFORMATION
  Report Type: Report from Study
  Country: CN (occurrence: CN)
  Receive Date: 20210129
  Receipt Date: 20210208
  Transmission Date: 20210419
  Serious: Yes (Hospitalization)
  Sender: FDA-Public Use
  Company Number: CN-BRISTOL-MYERS SQUIBB COMPANY-BMS-2020-103696

PATIENT
  Age: 77 Year
  Sex: Male
  Weight: 40 kg

DRUGS (2)
  1. NIVOLUMAB [Suspect]
     Active Substance: NIVOLUMAB
     Dosage: 140 MILLIGRAM, Q2WK
     Route: 042
  2. NIVOLUMAB [Suspect]
     Active Substance: NIVOLUMAB
     Indication: GASTRIC CANCER
     Dosage: 100 MILLIGRAM, Q2WK
     Route: 041
     Dates: start: 20201109

REACTIONS (8)
  - Asthenia [Unknown]
  - Vomiting [Unknown]
  - Prescribed underdose [Unknown]
  - Movement disorder [Unknown]
  - Decreased appetite [Unknown]
  - Muscular weakness [Unknown]
  - Weight decreased [Unknown]
  - Disease recurrence [Unknown]

NARRATIVE: CASE EVENT DATE: 202011
